FAERS Safety Report 5741902-3 (Version None)
Quarter: 2008Q2

REPORT INFORMATION
  Report Type: 
  Country: None (occurrence: None)
  Receive Date: 20080514
  Receipt Date: 20080514
  Transmission Date: 20081010
  Serious: Yes (Life-Threatening)
  Sender: FDA-Public Use
  Company Number: None

PATIENT
  Age: 64 Year
  Sex: Female
  Weight: 56.6996 kg

DRUGS (2)
  1. CHANTIX [Suspect]
     Indication: SMOKING CESSATION THERAPY
     Dates: start: 20071001, end: 20071201
  2. MEDTRONIC DEF. [Concomitant]

REACTIONS (4)
  - AGITATION [None]
  - ANGER [None]
  - ANXIETY [None]
  - SUICIDAL IDEATION [None]
